FAERS Safety Report 8297657-4 (Version None)
Quarter: 2012Q2

REPORT INFORMATION
  Report Type: 
  Country: None (occurrence: None)
  Receive Date: 20120419
  Receipt Date: 20120411
  Transmission Date: 20120825
  Serious: Yes (Other)
  Sender: FDA-Public Use
  Company Number: BR-PFIZER INC-2012091417

PATIENT
  Age: 83 Year
  Sex: Female

DRUGS (14)
  1. PRESSAT [Concomitant]
     Indication: HYPERTENSION
  2. XALATAN [Suspect]
     Indication: GLAUCOMA
     Dosage: 3 UG (TWO DROPS), 1X/DAY
     Route: 047
     Dates: start: 20070101, end: 20110401
  3. DAFORIN [Concomitant]
     Indication: DEPRESSION
     Dosage: ONE TABLET DAILY
     Dates: start: 20100401
  4. LOSARTAN POTASSIUM [Concomitant]
     Indication: CARDIAC DISORDER
     Dosage: TWO TABLETS DAILY (EVERY 12 HOURS)
     Dates: start: 20100101
  5. MODURETIC 5-50 [Concomitant]
     Indication: HYPERTENSION
  6. AZOPT [Concomitant]
     Indication: GLAUCOMA
     Dosage: ONE DROP IN EACH EYE/ 3X/DAY
     Dates: start: 20120201
  7. LORAZEPAM [Concomitant]
     Indication: SLEEP DISORDER
     Dosage: ONE TABLET DAILY
  8. ATENOLOL [Concomitant]
     Indication: HYPERTENSION
  9. MODURETIC 5-50 [Concomitant]
     Indication: CARDIAC DISORDER
     Dosage: HALF TABLET DAILY
     Dates: start: 20090101
  10. ALPHAGAN [Concomitant]
     Indication: GLAUCOMA
     Dosage: 1 GTT, 3X/DAY BOTH EYES
     Dates: start: 20120201
  11. METFORMIN [Concomitant]
     Indication: BLOOD GLUCOSE ABNORMAL
     Dosage: TWO TABLETS DAILY
     Dates: start: 20100101
  12. ATENOLOL [Concomitant]
     Indication: CARDIAC DISORDER
     Dosage: ONE TABLET DAILY
     Dates: start: 20090101
  13. PRESSAT [Concomitant]
     Indication: CARDIAC DISORDER
     Dosage: HALF TABLET DAILY
     Dates: start: 20090101
  14. LOSARTAN POTASSIUM [Concomitant]
     Indication: HYPERTENSION

REACTIONS (3)
  - CARDIAC PACEMAKER INSERTION [None]
  - CATARACT [None]
  - DEPRESSION [None]
